FAERS Safety Report 5646101-1 (Version None)
Quarter: 2008Q1

REPORT INFORMATION
  Report Type: 
  Country: None (occurrence: None)
  Receive Date: 20080229
  Receipt Date: 20080219
  Transmission Date: 20080703
  Serious: Yes (Other)
  Sender: FDA-Public Use
  Company Number: US-PFIZER INC-2008016620

PATIENT
  Sex: Female
  Weight: 96.363 kg

DRUGS (4)
  1. CELEBREX [Suspect]
     Indication: ARTHRALGIA
     Dates: start: 20080201, end: 20080219
  2. LISINOPRIL [Suspect]
     Indication: HYPERTENSION
  3. PRILOSEC [Concomitant]
  4. VITAMINS [Concomitant]

REACTIONS (4)
  - BURNING SENSATION [None]
  - DYSARTHRIA [None]
  - HEADACHE [None]
  - TONGUE DISORDER [None]
